FAERS Safety Report 6170083-X (Version None)
Quarter: 2009Q2

REPORT INFORMATION
  Report Type: 
  Country: None (occurrence: None)
  Receive Date: 20090428
  Receipt Date: 20090423
  Transmission Date: 20091009
  Serious: Yes (Hospitalization, Other)
  Sender: FDA-Public Use
  Company Number: A0780638A

PATIENT
  Sex: Female
  Weight: 60 kg

DRUGS (1)
  1. CEFUROXIME [Suspect]
     Indication: SINUSITIS
     Dosage: 500MG SINGLE DOSE
     Dates: start: 20090417, end: 20090417

REACTIONS (2)
  - ERYTHEMA [None]
  - LARYNGEAL OEDEMA [None]
